FAERS Safety Report 20010984 (Version 1)
Quarter: 2021Q4

REPORT INFORMATION
  Report Type: Spontaneous
  Country: US (occurrence: US)
  Receive Date: 20211029
  Receipt Date: 20211029
  Transmission Date: 20220303
  Serious: Yes (Hospitalization)
  Sender: FDA-Public Use
  Company Number: None

PATIENT
  Age: 58 Year
  Sex: Male
  Weight: 143.8 kg

DRUGS (8)
  1. JARDIANCE [Suspect]
     Active Substance: EMPAGLIFLOZIN
     Indication: Diabetes mellitus
     Route: 048
  2. amlodipine-atorvastatin (Caduet) 10-40 mg: take 1 tablet po qd [Concomitant]
  3. buproprion (Wellbutrin XL) 450 mg: take 1 tablet  po qd [Concomitant]
  4. escitalopram oxalate (Lexapro) 20 mg: take 1 tablet po qd [Concomitant]
  5. pregabalin (Lyrica) 150 mg: take one capsule po BID [Concomitant]
  6. sitagliptin-metformin (Janumet) 50-1000 mg: take two tablets po QD [Concomitant]
  7. tamsulosin (Flomax) 0.4 mg: take one capsule po qd [Concomitant]
  8. dulaglutide (Trulicty) 0.75mg/0.5mL pen: Inject 0.75 mg subQ q7days [Concomitant]

REACTIONS (4)
  - Fournier^s gangrene [None]
  - Asthenia [None]
  - Discomfort [None]
  - Appetite disorder [None]

NARRATIVE: CASE EVENT DATE: 20211020
